FAERS Safety Report 7937617-3 (Version None)
Quarter: 2011Q4

REPORT INFORMATION
  Report Type: 
  Country: None (occurrence: None)
  Receive Date: 20111123
  Receipt Date: 20111116
  Transmission Date: 20120403
  Serious: Yes (Hospitalization, Other)
  Sender: FDA-Public Use
  Company Number: CA-ABBOTT-11P-028-0730689-00

PATIENT
  Sex: Female
  Weight: 78.996 kg

DRUGS (3)
  1. UNKNOWN MEDICATIONS [Concomitant]
     Indication: PRODUCT USED FOR UNKNOWN INDICATION
  2. INSULIN [Concomitant]
     Indication: TYPE 2 DIABETES MELLITUS
     Route: 058
     Dates: start: 20010101
  3. HUMIRA [Suspect]
     Indication: RHEUMATOID ARTHRITIS
     Route: 058
     Dates: start: 20110509, end: 20110801

REACTIONS (5)
  - INTERVERTEBRAL DISC DEGENERATION [None]
  - SEPSIS [None]
  - OEDEMA PERIPHERAL [None]
  - ARTHRALGIA [None]
  - PULMONARY OEDEMA [None]
